FAERS Safety Report 20618792 (Version 15)
Quarter: 2023Q4

REPORT INFORMATION
  Report Type: Spontaneous
  Country: CA (occurrence: CA)
  Receive Date: 20220322
  Receipt Date: 20231229
  Transmission Date: 20240110
  Serious: Yes (Hospitalization, Other)
  Sender: FDA-Public Use
  Company Number: CA-CELLTRION INC.-2021CA018033

PATIENT

DRUGS (14)
  1. INFLECTRA [Suspect]
     Active Substance: INFLIXIMAB-DYYB
     Indication: Rheumatoid arthritis
     Dosage: 500 MG, INDUCTION DOSES 0, 2, 6 WEEKS, THEN EVERY 8 WEEKS
     Route: 042
     Dates: start: 20211221, end: 20220104
  2. INFLECTRA [Suspect]
     Active Substance: INFLIXIMAB-DYYB
     Dosage: 500 MG, INDUCTION DOSES 0, 2, 6 WEEKS, THEN EVERY 8 WEEKS
     Route: 042
     Dates: start: 20220104
  3. INFLECTRA [Suspect]
     Active Substance: INFLIXIMAB-DYYB
     Dosage: 500 MG, REINDUCTION WEEK 0,2,6 THEN MAINTENANCE EVERY 8 WEEKS (EVERY 8 WEEKS))
     Route: 042
     Dates: start: 20220811
  4. INFLECTRA [Suspect]
     Active Substance: INFLIXIMAB-DYYB
     Dosage: 500 MG, REINDUCTION WEEK 0,2,6 THEN MAINTENANCE EVERY 8 WEEKS (EVERY 8 WEEKS))
     Route: 042
     Dates: start: 20220811, end: 20221208
  5. INFLECTRA [Suspect]
     Active Substance: INFLIXIMAB-DYYB
     Dosage: 500 MG, REINDUCTION WEEK 0,2,6 THEN MAINTENANCE EVERY 8 WEEKS
     Route: 042
     Dates: start: 20220824
  6. INFLECTRA [Suspect]
     Active Substance: INFLIXIMAB-DYYB
     Dosage: 500 MG, RECIEVED INFUSION ON  5 WEEKS AND 6 DAYS AFTER LAST INFUSION
     Route: 042
     Dates: start: 20221004
  7. INFLECTRA [Suspect]
     Active Substance: INFLIXIMAB-DYYB
     Dosage: 500 MG, RECIEVED INFUSION ON  5 WEEKS AND 6 DAYS AFTER LAST INFUSION
     Route: 042
     Dates: start: 20221004
  8. INFLECTRA [Suspect]
     Active Substance: INFLIXIMAB-DYYB
     Dosage: 500 MG ,REINDUCTION WEEK 0,2,6 THEN MAINTENANCE EVERY 8 WEEKS.
     Route: 042
     Dates: start: 20221208
  9. INFLECTRA [Suspect]
     Active Substance: INFLIXIMAB-DYYB
     Dosage: 500 MG, EVERY 6 WEEKS
     Route: 042
     Dates: start: 20230208
  10. INFLECTRA [Suspect]
     Active Substance: INFLIXIMAB-DYYB
     Dosage: 500 MG, EVERY 6 WEEKS
     Route: 042
     Dates: start: 20230208
  11. INFLECTRA [Suspect]
     Active Substance: INFLIXIMAB-DYYB
     Dosage: 500 MG, EVERY 6 WEEKS
     Dates: start: 20230504
  12. METHOTREXATE [Concomitant]
     Active Substance: METHOTREXATE
     Dosage: 20 MG, WEEKLY
     Route: 058
     Dates: start: 2005
  13. PREDNISONE [Concomitant]
     Active Substance: PREDNISONE
     Dosage: UNK
  14. PREDNISONE [Concomitant]
     Active Substance: PREDNISONE
     Dosage: 1 DF

REACTIONS (13)
  - Abdominal pain [Recovered/Resolved]
  - Precancerous condition [Unknown]
  - Inflammatory bowel disease [Unknown]
  - Gastroenteritis norovirus [Recovered/Resolved]
  - Drug ineffective [Unknown]
  - Rhinorrhoea [Not Recovered/Not Resolved]
  - Influenza like illness [Not Recovered/Not Resolved]
  - Condition aggravated [Unknown]
  - Nasopharyngitis [Recovering/Resolving]
  - Cough [Not Recovered/Not Resolved]
  - Thyroid mass [Unknown]
  - Off label use [Unknown]
  - Inappropriate schedule of product administration [Unknown]

NARRATIVE: CASE EVENT DATE: 20220811
